FAERS Safety Report 7383333-9 (Version None)
Quarter: 2011Q1

REPORT INFORMATION
  Report Type: 
  Country: None (occurrence: None)
  Receive Date: 20110330
  Receipt Date: 20110316
  Transmission Date: 20110831
  Serious: Yes (Other)
  Sender: FDA-Public Use
  Company Number: NL-JNJFOC-20110311358

PATIENT
  Sex: Male

DRUGS (7)
  1. BUSCOPAN [Concomitant]
     Route: 065
  2. ALL OTHER THERAPEUTIC PRODUCTS [Concomitant]
     Route: 065
  3. SINTROM [Interacting]
     Indication: DEEP VEIN THROMBOSIS
     Route: 048
  4. TRAMADOL HYDROCHLORIDE [Suspect]
     Indication: PRODUCT USED FOR UNKNOWN INDICATION
     Route: 048
  5. ALL OTHER THERAPEUTIC PRODUCTS [Concomitant]
  6. TRAMADOL HYDROCHLORIDE [Suspect]
     Route: 048
  7. TRAMADOL HYDROCHLORIDE [Suspect]
     Route: 048

REACTIONS (2)
  - INTERNATIONAL NORMALISED RATIO INCREASED [None]
  - DRUG INTERACTION [None]
